FAERS Safety Report 4947257-6 (Version None)
Quarter: 2006Q1

REPORT INFORMATION
  Report Type: 
  Country: None (occurrence: None)
  Receive Date: 20060313
  Receipt Date: 20060217
  Transmission Date: 20060701
  Serious: Yes (Hospitalization)
  Sender: FDA-Public Use
  Company Number: 206839

PATIENT
  Age: 52 Year
  Sex: Female

DRUGS (23)
  1. HERCEPTIN [Suspect]
     Indication: BREAST CANCER
     Dosage: SEE IMAGE
     Route: 042
     Dates: start: 20030811, end: 20030825
  2. HERCEPTIN [Suspect]
     Indication: BREAST CANCER
     Dosage: SEE IMAGE
     Route: 042
     Dates: start: 20030915, end: 20030929
  3. HERCEPTIN [Suspect]
     Indication: BREAST CANCER
     Dosage: SEE IMAGE
     Route: 042
     Dates: start: 20030714, end: 20040119
  4. HERCEPTIN [Suspect]
     Indication: BREAST CANCER
     Dosage: SEE IMAGE
     Route: 042
     Dates: start: 20030728
  5. TAXOTERE [Concomitant]
  6. ADRIAMYCIN PFS [Concomitant]
  7. CYTOXAN [Concomitant]
  8. ZOLOFT [Concomitant]
  9. HYDRALAZINE HCL [Concomitant]
  10. CARDIZEM [Concomitant]
  11. ZOFRAN [Concomitant]
  12. COUMADIN [Concomitant]
  13. COMPAZINE [Concomitant]
  14. REMERON [Concomitant]
  15. LASIX [Concomitant]
  16. K-TAB [Concomitant]
  17. MOTRIN [Concomitant]
  18. SINGULAIR [Concomitant]
  19. ADVAIR DISKUS 100/50 [Concomitant]
  20. GLIPIZIDE [Concomitant]
  21. CELEBREX [Concomitant]
  22. ALBUTEROL (ALBUTEROL/ALBUTEROL SULFATE) [Concomitant]
  23. RADIOTHERAPY (RADIATION THERAPY) [Concomitant]

REACTIONS (8)
  - ATELECTASIS [None]
  - CARDIAC FAILURE CONGESTIVE [None]
  - DIAPHRAGMATIC PARALYSIS [None]
  - PNEUMONIA [None]
  - PULMONARY OEDEMA [None]
  - RADIATION PNEUMONITIS [None]
  - RESPIRATORY DISORDER [None]
  - RESTRICTIVE PULMONARY DISEASE [None]
